FAERS Safety Report 20919831 (Version 1)
Quarter: 2022Q2

REPORT INFORMATION
  Report Type: Spontaneous
  Country: US (occurrence: None)
  Receive Date: 20220605
  Receipt Date: 20220605
  Transmission Date: 20220721
  Serious: Yes (Hospitalization)
  Sender: FDA-Public Use
  Company Number: None

PATIENT
  Age: 80 Year
  Sex: Female
  Weight: 75 kg

DRUGS (1)
  1. TERIPARATIDE [Suspect]
     Active Substance: TERIPARATIDE

REACTIONS (3)
  - Wrong technique in device usage process [None]
  - Wrong technique in product usage process [None]
  - Extra dose administered [None]

NARRATIVE: CASE EVENT DATE: 20220520
